FAERS Safety Report 26076360 (Version 1)
Quarter: 2025Q4

REPORT INFORMATION
  Report Type: Spontaneous
  Country: EU (occurrence: EU)
  Receive Date: 20251121
  Receipt Date: 20251121
  Transmission Date: 20260117
  Serious: Yes (Hospitalization)
  Sender: MYLAN
  Company Number: None

PATIENT
  Age: 66 Year
  Sex: Female
  Weight: 42 kg

DRUGS (7)
  1. PREGABALIN [Suspect]
     Active Substance: PREGABALIN
     Indication: Neuralgia
     Dosage: 1 DOSAGE FORM, QD
     Dates: start: 20250128, end: 20250214
  2. CLOXACILLIN [Suspect]
     Active Substance: CLOXACILLIN
     Indication: Bacteraemia
     Dosage: 5 GRAM, QD
     Dates: start: 20250128, end: 20250214
  3. CLINDAMYCIN [Suspect]
     Active Substance: CLINDAMYCIN
     Indication: Bacteraemia
     Dosage: 600 MILLIGRAM, QD
     Dates: start: 20250214, end: 20250227
  4. AUGMENTIN [Concomitant]
     Active Substance: AMOXICILLIN\CLAVULANATE POTASSIUM
     Dosage: UNK
  5. LEVOFLOXACIN [Concomitant]
     Active Substance: LEVOFLOXACIN
     Dosage: UNK
  6. GENTAMICIN [Concomitant]
     Active Substance: GENTAMICIN
     Dosage: UNK
  7. AMITRIPTYLINE HYDROCHLORIDE [Concomitant]
     Active Substance: AMITRIPTYLINE HYDROCHLORIDE
     Dosage: UNK

REACTIONS (2)
  - Erythema [Recovered/Resolved]
  - Rash maculo-papular [Recovered/Resolved]

NARRATIVE: CASE EVENT DATE: 20250213
